FAERS Safety Report 10516745 (Version 1)
Quarter: 2014Q4

REPORT INFORMATION
  Report Type: Spontaneous
  Country: US (occurrence: None)
  Receive Date: 20141003
  Receipt Date: 20141003
  Transmission Date: 20150528
  Serious: Yes (Other)
  Sender: FDA-Public Use
  Company Number: 1235243

PATIENT
  Age: 53 Year
  Sex: Female

DRUGS (3)
  1. TELAPREVIR [Suspect]
     Active Substance: TELAPREVIR
     Indication: CHRONIC HEPATITIS C
     Dosage: 2 TABS 3 TIMES DAILY. (375 MG, 3 IN 1 D), ORAL
     Route: 048
     Dates: start: 20130606
  2. PEGASYS [Suspect]
     Active Substance: PEGINTERFERON ALFA-2A
     Indication: CHRONIC HEPATITIS C
     Dosage: 180 UG, 40 WEEK COURSE, SUBCUTANEOUS
     Route: 058
     Dates: start: 20130606
  3. COPEGUS [Suspect]
     Active Substance: RIBAVIRIN
     Indication: CHRONIC HEPATITIS C
     Dosage: DOSE OF 600/600 (PER DAY IN DIVIDED DOSES), ORAL
     Route: 048
     Dates: start: 20130606

REACTIONS (15)
  - Nausea [None]
  - Feeling abnormal [None]
  - Platelet count decreased [None]
  - Muscle spasms [None]
  - Chills [None]
  - Stomatitis [None]
  - Weight decreased [None]
  - Haematocrit decreased [None]
  - Pyrexia [None]
  - Pain [None]
  - Vomiting [None]
  - Haemoglobin decreased [None]
  - Asthenia [None]
  - Red blood cell count decreased [None]
  - White blood cell count decreased [None]

NARRATIVE: CASE EVENT DATE: 20130712
